FAERS Safety Report 20687378 (Version 1)
Quarter: 2022Q2

REPORT INFORMATION
  Report Type: Spontaneous
  Country: US (occurrence: US)
  Receive Date: 20220408
  Receipt Date: 20220408
  Transmission Date: 20220721
  Serious: Yes (Death, Hospitalization, Other)
  Sender: FDA-Public Use
  Company Number: US-UNITED THERAPEUTICS-UNT-2022-001735

PATIENT
  Age: 67 Year
  Sex: Male
  Weight: 81.633 kg

DRUGS (6)
  1. TYVASO [Suspect]
     Active Substance: TREPROSTINIL
     Indication: Pulmonary arterial hypertension
     Dosage: UNK
     Dates: start: 20211220
  2. TYVASO [Suspect]
     Active Substance: TREPROSTINIL
     Dosage: 18-72 ?G, QID
  3. TYVASO [Suspect]
     Active Substance: TREPROSTINIL
     Dosage: 6 ?G (PER SESSION)
     Dates: start: 20211222
  4. OFEV [Concomitant]
     Active Substance: NINTEDANIB
     Indication: Idiopathic pulmonary fibrosis
     Dosage: 300 MG, QD (1 IN 1 DAY)
     Route: 048
     Dates: start: 20211025
  5. OFEV [Concomitant]
     Active Substance: NINTEDANIB
     Indication: Pulmonary hypertension
     Dosage: UNK
     Route: 048
  6. WARFARIN SODIUM [Concomitant]
     Active Substance: WARFARIN SODIUM
     Indication: Product used for unknown indication
     Dosage: UNK
     Route: 065

REACTIONS (10)
  - Death [Fatal]
  - Dyspnoea [Unknown]
  - Impaired self-care [Unknown]
  - Peripheral swelling [Unknown]
  - Fatigue [Unknown]
  - Cough [Unknown]
  - Diarrhoea [Not Recovered/Not Resolved]
  - Illness [Not Recovered/Not Resolved]
  - Product dose omission issue [Unknown]
  - Device use error [Unknown]

NARRATIVE: CASE EVENT DATE: 20220121
